FAERS Safety Report 4615508-3 (Version None)
Quarter: 2005Q1

REPORT INFORMATION
  Report Type: 
  Country: None (occurrence: None)
  Receive Date: 20050317
  Receipt Date: 20050307
  Transmission Date: 20050727
  Serious: Yes (Hospitalization)
  Sender: FDA-Public Use
  Company Number: 2004-BP-03397RO

PATIENT
  Age: 75 Year
  Sex: Male

DRUGS (5)
  1. LEUCOVORIN CALCIUM [Suspect]
     Indication: GASTRIC CANCER
     Dosage: 90 MG X 1 CYCLE , PO
     Route: 048
     Dates: start: 20030808, end: 20030930
  2. TAXOL [Suspect]
     Indication: GASTRIC CANCER
     Dosage: 160 MG X 2 CYCLES (1 IN1 8D), IV
     Route: 042
     Dates: start: 20030808, end: 20030926
  3. UFT [Suspect]
     Indication: GASTRIC CANCER
     Dosage: 500 MG X 1 CYCLE (500 MG), PO
     Route: 048
     Dates: start: 20030808, end: 20030930
  4. EURODIN (ESTAZOLAM) [Concomitant]
  5. PANZYNORM (PANZYNORM) [Concomitant]

REACTIONS (6)
  - BILE CULTURE POSITIVE [None]
  - DRUG INEFFECTIVE [None]
  - ESCHERICHIA INFECTION [None]
  - ORAL CANDIDIASIS [None]
  - PHARYNGOLARYNGEAL PAIN [None]
  - PYREXIA [None]
